FAERS Safety Report 6866140-2 (Version None)
Quarter: 2010Q2

REPORT INFORMATION
  Report Type: 
  Country: None (occurrence: None)
  Receive Date: 20100610
  Receipt Date: 20100312
  Transmission Date: 20101027
  Serious: Yes (Other)
  Sender: FDA-Public Use
  Company Number: US-1181014

PATIENT
  Age: 71 Year
  Sex: Female
  Weight: 54.4316 kg

DRUGS (5)
  1. AZOPT [Suspect]
     Indication: GLAUCOMA
     Dosage: SEE IMAGE
     Route: 047
     Dates: start: 20100114, end: 20100124
  2. AZOPT [Suspect]
     Indication: GLAUCOMA
     Dosage: SEE IMAGE
     Route: 047
     Dates: start: 20100204, end: 20100210
  3. AZOPT [Suspect]
     Indication: GLAUCOMA
     Dosage: SEE IMAGE
     Route: 047
     Dates: start: 20100210, end: 20100218
  4. LUMIGAN [Concomitant]
  5. ADVAIR DISKUS 100/50 [Concomitant]

REACTIONS (1)
  - RENAL PAIN [None]
